FAERS Safety Report 15440298 (Version 3)
Quarter: 2019Q1

REPORT INFORMATION
  Report Type: Report from Study
  Country: ZA (occurrence: ZA)
  Receive Date: 20180928
  Receipt Date: 20190107
  Transmission Date: 20190417
  Serious: Yes (Death, Life-Threatening, Hospitalization)
  Sender: FDA-Public Use
  Company Number: ZA-SAKK-2018SA209456AA

PATIENT
  Age: 41 Year
  Sex: Male

DRUGS (10)
  1. OXPOLA [Concomitant]
     Active Substance: PRAMIPEXOLE DIHYDROCHLORIDE
     Dosage: 1 MG, TID
     Dates: start: 20180625
  2. DIAGLUCIDE [Concomitant]
     Active Substance: GLICLAZIDE
     Dosage: 60 MG, QD
     Dates: start: 20180621
  3. BAYER ASPIRIN CARDIO [Concomitant]
     Active Substance: ASPIRIN
     Dosage: 100 MG, BID
     Dates: start: 20180625
  4. SERDEP [FLUOXETINE HYDROCHLORIDE] [Concomitant]
     Dosage: 100 MG, QD, BEFORE BREAKFAST
     Dates: start: 20180625
  5. METFORMIN [Concomitant]
     Active Substance: METFORMIN HYDROCHLORIDE
     Dosage: 1000 MG, TID
     Dates: start: 20180621
  6. TOUJEO [Suspect]
     Active Substance: INSULIN GLARGINE
     Indication: TYPE 2 DIABETES MELLITUS
     Dosage: 36 (UNIT UNKNOWN), QD
     Dates: start: 20180621
  7. NO STUDY DRUG GIVEN [Suspect]
     Active Substance: UNSPECIFIED INGREDIENT
     Dosage: UNK
  8. TOPLEP [Concomitant]
     Active Substance: TOPIRAMATE
     Dosage: 25 MG, QD
     Dates: start: 20180625
  9. TOUJEO [Suspect]
     Active Substance: INSULIN GLARGINE
     Dosage: 60 U,HS
     Dates: start: 20180619
  10. ENAP [ENALAPRIL MALEATE] [Concomitant]
     Dosage: 20 MG, QD
     Dates: start: 20180625

REACTIONS (9)
  - Lethargy [Not Recovered/Not Resolved]
  - Dysgeusia [Fatal]
  - Back injury [Not Recovered/Not Resolved]
  - Intentional product use issue [Unknown]
  - Hypotension [Recovered/Resolved]
  - Vertigo [Recovered/Resolved]
  - Syncope [Recovered/Resolved]
  - Dizziness [Not Recovered/Not Resolved]
  - Glycosylated haemoglobin increased [Unknown]

NARRATIVE: CASE EVENT DATE: 20180622
